FAERS Safety Report 4846012-5 (Version None)
Quarter: 2005Q4

REPORT INFORMATION
  Report Type: 
  Country: None (occurrence: None)
  Receive Date: 20051201
  Receipt Date: 20051115
  Transmission Date: 20060501
  Serious: Yes (Other)
  Sender: FDA-Public Use
  Company Number: 200510178

PATIENT
  Age: 55 Year
  Sex: Male

DRUGS (2)
  1. TIMOLOL MALEATE [Suspect]
     Indication: GLAUCOMA
     Dates: start: 20030101, end: 20040601
  2. LUMIGAN [Concomitant]

REACTIONS (1)
  - LUNG NEOPLASM MALIGNANT [None]
